FAERS Safety Report 5209156-4 (Version None)
Quarter: 2007Q1

REPORT INFORMATION
  Report Type: 
  Country: None (occurrence: None)
  Receive Date: 20070105
  Receipt Date: 20061229
  Transmission Date: 20070707
  Serious: Yes (Other)
  Sender: FDA-Public Use
  Company Number: 200610351BBE

PATIENT
  Age: 64 Year
  Sex: Male

DRUGS (13)
  1. GAMUNEX [Suspect]
     Indication: GUILLAIN-BARRE SYNDROME
     Dosage: SEE IMAGE
     Route: 042
     Dates: start: 20060920
  2. GAMUNEX [Suspect]
     Indication: GUILLAIN-BARRE SYNDROME
     Dosage: SEE IMAGE
     Route: 042
     Dates: start: 20060921
  3. GAMUNEX [Suspect]
     Indication: GUILLAIN-BARRE SYNDROME
     Dosage: SEE IMAGE
     Route: 042
     Dates: start: 20060921
  4. GAMUNEX [Suspect]
     Indication: GUILLAIN-BARRE SYNDROME
     Dosage: SEE IMAGE
     Route: 042
     Dates: start: 20060921
  5. GAMUNEX [Suspect]
     Indication: GUILLAIN-BARRE SYNDROME
     Dosage: SEE IMAGE
     Route: 042
     Dates: start: 20060922
  6. GAMUNEX [Suspect]
  7. CIPRO [Concomitant]
  8. COZAAR [Concomitant]
  9. LIPITOR [Concomitant]
  10. ASPIRIN [Concomitant]
  11. COLACE [Concomitant]
  12. SENOKOT [Concomitant]
  13. FLOMAX [Concomitant]

REACTIONS (2)
  - INFECTION [None]
  - NEUTROPENIA [None]
